FAERS Safety Report 10748780 (Version 3)
Quarter: 2015Q3

REPORT INFORMATION
  Report Type: Spontaneous
  Country: FR (occurrence: FR)
  Receive Date: 20150129
  Receipt Date: 20150803
  Transmission Date: 20151125
  Serious: Yes (Death, Hospitalization)
  Sender: FDA-Public Use
  Company Number: FR-PFIZER INC-2015028887

PATIENT
  Age: 85 Year
  Sex: Female

DRUGS (13)
  1. CARDENSIEL [Concomitant]
     Active Substance: BISOPROLOL FUMARATE
     Dosage: 1.25
  2. INEXIUM [Concomitant]
     Active Substance: ESOMEPRAZOLE
     Dosage: 40
  3. SPASFON-LYOC [Concomitant]
     Active Substance: PHLOROGLUCINOL
     Dosage: 80
  4. OXYNORM [Interacting]
     Active Substance: OXYCODONE HYDROCHLORIDE
     Indication: NEURALGIA
     Dosage: UNK
     Route: 048
     Dates: start: 2014, end: 20141129
  5. OXYCONTIN [Interacting]
     Active Substance: OXYCODONE HYDROCHLORIDE
     Indication: NEURALGIA
     Dosage: UNK
     Route: 048
     Dates: start: 2014, end: 20141129
  6. LASILIX SPECIAL [Concomitant]
     Active Substance: FUROSEMIDE
     Dosage: 500
  7. LETROZOLE BLF [Concomitant]
     Dosage: 2.5
  8. LEVOTHYROX [Concomitant]
     Active Substance: LEVOTHYROXINE
     Dosage: 75 ?G, 1X/DAY
  9. MOTILIUM [Concomitant]
     Active Substance: DOMPERIDONE
     Dosage: 10
  10. SPECIAFOLDINE [Concomitant]
     Active Substance: FOLIC ACID
     Dosage: 5
  11. LYRICA [Suspect]
     Active Substance: PREGABALIN
     Indication: NEURALGIA
     Dosage: 25 MG, 2X/DAY
     Route: 048
     Dates: start: 2014, end: 20141129
  12. KARDEGIC [Concomitant]
     Active Substance: ASPIRIN LYSINE
     Dosage: 75
  13. NOVOMIX [Concomitant]
     Active Substance: INSULIN ASPART
     Dosage: 30

REACTIONS (7)
  - Disease progression [Fatal]
  - Drug interaction [Recovered/Resolved]
  - Abasia [Recovering/Resolving]
  - Hallucination, visual [Recovered/Resolved]
  - Breast cancer [Fatal]
  - Confusional state [Recovered/Resolved]
  - Somnolence [Recovered/Resolved]

NARRATIVE: CASE EVENT DATE: 201411
